FAERS Safety Report 5701652-6 (Version None)
Quarter: 2008Q2

REPORT INFORMATION
  Report Type: 
  Country: None (occurrence: None)
  Receive Date: 20080411
  Receipt Date: 20080402
  Transmission Date: 20081010
  Serious: Yes (Hospitalization)
  Sender: FDA-Public Use
  Company Number: GB-RANBAXY-2008RR-14211

PATIENT

DRUGS (1)
  1. OFLOXACIN 200MG TABLETS [Suspect]
     Indication: PROSTATITIS

REACTIONS (1)
  - VENTRICULAR TACHYCARDIA [None]
